FAERS Safety Report 19842237 (Version 2)
Quarter: 2021Q3

REPORT INFORMATION
  Report Type: Report from Study
  Country: US (occurrence: US)
  Receive Date: 20210915
  Receipt Date: 20210930
  Transmission Date: 20211014
  Serious: Yes (Other)
  Sender: FDA-Public Use
  Company Number: US-JAZZ-2021-US-016909

PATIENT
  Sex: Male

DRUGS (1)
  1. XYWAV [Suspect]
     Active Substance: CALCIUM OXYBATE\MAGNESIUM OXYBATE\POTASSIUM OXYBATE\SODIUM OXYBATE
     Indication: NARCOLEPSY
     Dosage: 4.5 GRAM, BID
     Route: 048
     Dates: start: 202106

REACTIONS (6)
  - Sleep apnoea syndrome [Unknown]
  - Foot deformity [Unknown]
  - Neuropathy peripheral [Not Recovered/Not Resolved]
  - Metatarsalgia [Unknown]
  - Serum ferritin increased [Unknown]
  - Feeling abnormal [Not Recovered/Not Resolved]
